FAERS Safety Report 9277211 (Version 3)
Quarter: 2013Q2

REPORT INFORMATION
  Report Type: Spontaneous
  Country: US (occurrence: US)
  Receive Date: 20130508
  Receipt Date: 20130619
  Transmission Date: 20140414
  Serious: Yes (Other)
  Sender: FDA-Public Use
  Company Number: US-AMGEN-USASP2013030268

PATIENT
  Age: 68 Year
  Sex: Female
  Weight: 61.22 kg

DRUGS (2)
  1. EPOGEN [Suspect]
     Indication: RENAL FAILURE CHRONIC
     Dosage: 8000 UNIT, UNK
     Route: 065
     Dates: start: 2010
  2. PROGRAF [Concomitant]
     Indication: LIVER TRANSPLANT
     Dosage: UNK
     Route: 065

REACTIONS (3)
  - Therapeutic response decreased [Unknown]
  - Refractory cytopenia with unilineage dysplasia [Unknown]
  - Bone marrow disorder [Unknown]
